FAERS Safety Report 17073447 (Version 2)
Quarter: 2020Q1

REPORT INFORMATION
  Report Type: Report from Study
  Country: US (occurrence: US)
  Receive Date: 20191126
  Receipt Date: 20200226
  Transmission Date: 20200409
  Serious: No
  Sender: FDA-Public Use
  Company Number: PHHY2018US009314

PATIENT
  Age: 28 Year
  Sex: Female

DRUGS (1)
  1. GILENYA [Suspect]
     Active Substance: FINGOLIMOD HYDROCHLORIDE
     Indication: MULTIPLE SCLEROSIS
     Dosage: UNK UNK, QD
     Route: 048

REACTIONS (15)
  - Asthenia [Recovered/Resolved]
  - Tinnitus [Unknown]
  - White blood cell count decreased [Recovered/Resolved]
  - Haemangioma [Unknown]
  - Nasal congestion [Unknown]
  - Sinusitis [Unknown]
  - Upper respiratory tract infection [Recovered/Resolved]
  - Pain [Recovered/Resolved]
  - Skin papilloma [Unknown]
  - Nausea [Recovered/Resolved]
  - Fungal infection [Recovered/Resolved]
  - Melanocytic naevus [Unknown]
  - Fatigue [Unknown]
  - Headache [Unknown]
  - White blood cell count decreased [Recovered/Resolved]

NARRATIVE: CASE EVENT DATE: 20170628
